FAERS Safety Report 21285647 (Version 10)
Quarter: 2022Q4

REPORT INFORMATION
  Report Type: Report from Study
  Country: US (occurrence: US)
  Receive Date: 20220902
  Receipt Date: 20221122
  Transmission Date: 20230113
  Serious: Yes (Hospitalization, Other)
  Sender: FDA-Public Use
  Company Number: NVSC2022US197826

PATIENT
  Sex: Female

DRUGS (2)
  1. COSENTYX [Suspect]
     Active Substance: SECUKINUMAB
     Indication: Psoriasis
     Dosage: 150 MG, QMO
     Route: 058
  2. COSENTYX [Suspect]
     Active Substance: SECUKINUMAB
     Dosage: UNK
     Route: 065

REACTIONS (10)
  - Gastrointestinal infection [Recovered/Resolved]
  - Vitreous detachment [Recovering/Resolving]
  - Photopsia [Recovering/Resolving]
  - Visual impairment [Recovering/Resolving]
  - Injection site bruising [Unknown]
  - Skin exfoliation [Unknown]
  - Pruritus [Unknown]
  - Injection site haemorrhage [Unknown]
  - Upper respiratory tract infection [Unknown]
  - Therapeutic product effect delayed [Unknown]
